FAERS Safety Report 4977368-0 (Version None)
Quarter: 2006Q2

REPORT INFORMATION
  Report Type: 
  Country: None (occurrence: None)
  Receive Date: 20060419
  Receipt Date: 20051206
  Transmission Date: 20061013
  Serious: Yes (Hospitalization)
  Sender: FDA-Public Use
  Company Number: US-MERCK-0512USA01083

PATIENT
  Age: 61 Year
  Sex: Female
  Weight: 57 kg

DRUGS (9)
  1. VIOXX [Suspect]
     Indication: OSTEOARTHRITIS
     Route: 048
     Dates: start: 20000101, end: 20040101
  2. VIOXX [Suspect]
     Route: 048
     Dates: start: 20000101, end: 20040101
  3. ALLEGRA [Concomitant]
     Indication: SEASONAL ALLERGY
     Route: 065
  4. ALBUTEROL [Concomitant]
     Indication: DYSPNOEA
     Route: 065
  5. PROTONIX [Concomitant]
     Indication: GASTROOESOPHAGEAL REFLUX DISEASE
     Route: 065
  6. EVISTA [Concomitant]
     Indication: POSTMENOPAUSE
     Route: 065
  7. BACTRIM [Concomitant]
     Route: 065
  8. ZANTAC [Concomitant]
     Indication: GASTROOESOPHAGEAL REFLUX DISEASE
     Route: 065
  9. FLONASE [Concomitant]
     Route: 065

REACTIONS (10)
  - BLOOD CHOLESTEROL INCREASED [None]
  - CARDIAC ARREST [None]
  - CHEST PAIN [None]
  - HYPERTENSION [None]
  - LIMB INJURY [None]
  - MYOCARDIAL INFARCTION [None]
  - SPINAL COLUMN STENOSIS [None]
  - SWELLING [None]
  - VENTRICULAR TACHYCARDIA [None]
  - WRIST FRACTURE [None]
